FAERS Safety Report 5242501-2 (Version None)
Quarter: 2007Q1

REPORT INFORMATION
  Report Type: 
  Country: None (occurrence: None)
  Receive Date: 20070221
  Receipt Date: 20070207
  Transmission Date: 20070707
  Serious: Yes (Hospitalization)
  Sender: FDA-Public Use
  Company Number: US-AMGEN-STX210250

PATIENT
  Sex: Male

DRUGS (2)
  1. ENBREL [Suspect]
     Indication: PSORIATIC ARTHROPATHY
     Route: 065
  2. SULFASALAZINE [Concomitant]

REACTIONS (3)
  - ARTHRALGIA [None]
  - POST PROCEDURAL COMPLICATION [None]
  - PSORIATIC ARTHROPATHY [None]
